FAERS Safety Report 9490079 (Version 1)
Quarter: 2013Q3

REPORT INFORMATION
  Report Type: Spontaneous
  Country: US (occurrence: US)
  Receive Date: 20130829
  Receipt Date: 20130829
  Transmission Date: 20140515
  Serious: Yes (Life-Threatening, Hospitalization, Other)
  Sender: FDA-Public Use
  Company Number: US-TEVA-429016USA

PATIENT
  Age: 18 Day
  Sex: Male
  Weight: 4 kg

DRUGS (4)
  1. FLECAINIDE [Suspect]
     Indication: SUPRAVENTRICULAR TACHYCARDIA
     Dosage: 8MG EVERY 8H (INSTEAD OF PRESCRIBED DOSAGE)
     Route: 048
  2. ATROPINE [Concomitant]
     Dosage: 0.1MG
     Route: 042
  3. ADENOSINE [Concomitant]
     Indication: SUPRAVENTRICULAR TACHYCARDIA
     Route: 065
  4. ESMOLOL [Concomitant]
     Indication: SUPRAVENTRICULAR TACHYCARDIA
     Route: 065

REACTIONS (5)
  - Accidental overdose [Recovering/Resolving]
  - Cardiac arrest neonatal [Recovered/Resolved]
  - Tachycardia [Recovering/Resolving]
  - Toxicity to various agents [Recovering/Resolving]
  - Product label issue [Recovering/Resolving]
